FAERS Safety Report 7766228-8 (Version None)
Quarter: 2011Q3

REPORT INFORMATION
  Report Type: 
  Country: None (occurrence: None)
  Receive Date: 20110921
  Receipt Date: 20110914
  Transmission Date: 20111222
  Serious: Yes (Life-Threatening)
  Sender: FDA-Public Use
  Company Number: US-BAYER-2011-086390

PATIENT
  Age: 39 Year
  Sex: Female

DRUGS (6)
  1. TRAMADOL HCL [Concomitant]
     Dosage: 50 MG, PRN
  2. XANAX [Concomitant]
     Dosage: 2 MG, UNK
  3. AMBIEN CR [Concomitant]
  4. AVELOX [Suspect]
     Indication: LABYRINTHITIS
     Dosage: 400 MG, QD
     Route: 048
     Dates: start: 20110909, end: 20110910
  5. FLEXERIL [Concomitant]
     Dosage: 10 MG, PRN
  6. CYMBALTA [Concomitant]
     Dosage: 30 MG, UNK

REACTIONS (6)
  - URTICARIA [None]
  - DYSPNOEA [None]
  - SWELLING FACE [None]
  - ANAPHYLACTIC REACTION [None]
  - LIP SWELLING [None]
  - FLUSHING [None]
